FAERS Safety Report 8716278 (Version 3)
Quarter: 2013Q4

REPORT INFORMATION
  Report Type: Spontaneous
  Country: JP (occurrence: JP)
  Receive Date: 20120810
  Receipt Date: 20131031
  Transmission Date: 20140711
  Serious: Yes (Other)
  Sender: FDA-Public Use
  Company Number: JP-MERCK-1208JPN001981

PATIENT
  Age: 68 Year
  Sex: Female

DRUGS (6)
  1. GASTER D [Suspect]
     Dosage: 40 MG, QD
     Route: 048
     Dates: start: 20120719, end: 20120722
  2. CELECOX [Suspect]
     Dosage: 200 MG, QD
     Route: 048
     Dates: start: 20120719, end: 20120722
  3. LIPITOR [Concomitant]
     Dosage: UNK MG, UNK
  4. NEUROTROPIN [Concomitant]
     Dosage: UNK
     Dates: start: 20120719, end: 20120722
  5. NORVASC [Concomitant]
     Dosage: UNK
  6. NOVORAPID [Concomitant]
     Dosage: UNK

REACTIONS (2)
  - Drug eruption [Unknown]
  - Intentional drug misuse [Unknown]
